FAERS Safety Report 9618715 (Version 1)
Quarter: 2013Q4

REPORT INFORMATION
  Report Type: Spontaneous
  Country: BR (occurrence: BR)
  Receive Date: 20131014
  Receipt Date: 20131014
  Transmission Date: 20140711
  Serious: Yes (Other)
  Sender: FDA-Public Use
  Company Number: BR-ACCORD-019855

PATIENT
  Age: 61 Year
  Sex: Female
  Weight: 82.1 kg

DRUGS (10)
  1. CISPLATIN [Suspect]
     Indication: VAGINAL CANCER RECURRENT
     Dates: start: 20130829
  2. FLUOXETINE [Concomitant]
     Dosage: CONTINEOUS USE
     Dates: start: 2012
  3. RANITIDINE HYDROCHLORIDE [Concomitant]
     Route: 042
     Dates: start: 20130919, end: 20130919
  4. MODURET [Concomitant]
     Dosage: CONTINEOUS USE
     Dates: start: 2012
  5. DIFENIDRIN [Concomitant]
     Route: 042
     Dates: start: 20130919, end: 20130919
  6. PACLITAXEL [Suspect]
     Indication: VAGINAL CANCER RECURRENT
     Route: 042
     Dates: start: 20130829, end: 20130919
  7. NAUSEDRON [Concomitant]
     Route: 042
     Dates: start: 20130919, end: 20130919
  8. NOPROSIL [Concomitant]
     Route: 042
     Dates: start: 20130919, end: 20130919
  9. CLONAZEPAM [Concomitant]
     Dosage: CONTINEOUS USE
     Dates: start: 2012
  10. DEXAMETHASONE [Concomitant]
     Route: 042
     Dates: start: 20130919, end: 20130919

REACTIONS (5)
  - Rash [Unknown]
  - Hyperaemia [Recovered/Resolved]
  - Hypertension [Recovered/Resolved]
  - Tachycardia [Recovered/Resolved]
  - Feeling hot [Recovered/Resolved]
